FAERS Safety Report 6084583-4 (Version None)
Quarter: 2009Q1

REPORT INFORMATION
  Report Type: 
  Country: None (occurrence: None)
  Receive Date: 20090219
  Receipt Date: 20090210
  Transmission Date: 20090719
  Serious: Yes (Death, Hospitalization, Other)
  Sender: FDA-Public Use
  Company Number: US-BAXTER-2008BH007116

PATIENT
  Age: 80 Year
  Sex: Male

DRUGS (67)
  1. HEPARIN SODIUM INJECTION [Suspect]
     Indication: THROMBOSIS PROPHYLAXIS
     Dosage: DOSE UNIT:UNKNOWN
     Route: 065
     Dates: start: 20070906, end: 20070920
  2. ENOXAPARIN SODIUM [Concomitant]
     Indication: DRUG USE FOR UNKNOWN INDICATION
     Route: 042
  3. ENOXAPARIN SODIUM [Concomitant]
     Route: 065
  4. ENOXAPARIN SODIUM [Concomitant]
     Route: 065
  5. ENOXAPARIN SODIUM [Concomitant]
     Route: 065
  6. METOPROLOL TARTRATE [Concomitant]
     Indication: DRUG USE FOR UNKNOWN INDICATION
     Route: 065
  7. NIFEDIPINE [Concomitant]
     Indication: DRUG USE FOR UNKNOWN INDICATION
     Route: 065
  8. PANTOPRAZOLE SODIUM [Concomitant]
     Indication: DRUG USE FOR UNKNOWN INDICATION
     Route: 065
  9. ENOXAPARIN SODIUM [Concomitant]
     Route: 065
  10. SIMVASTATIN [Concomitant]
     Indication: DRUG USE FOR UNKNOWN INDICATION
     Route: 065
  11. INSULIN [Concomitant]
     Indication: DRUG USE FOR UNKNOWN INDICATION
     Route: 065
  12. VERSED [Concomitant]
     Indication: DRUG USE FOR UNKNOWN INDICATION
     Route: 065
  13. FENTANYL [Concomitant]
     Indication: DRUG USE FOR UNKNOWN INDICATION
     Route: 065
  14. PAVULON [Concomitant]
     Indication: DRUG USE FOR UNKNOWN INDICATION
     Route: 065
  15. NOVOLOG [Concomitant]
     Indication: DRUG USE FOR UNKNOWN INDICATION
     Route: 065
  16. LANTUS [Concomitant]
     Indication: DRUG USE FOR UNKNOWN INDICATION
     Route: 065
  17. IMDUR [Concomitant]
     Indication: DRUG USE FOR UNKNOWN INDICATION
     Route: 065
  18. LISINOPRIL [Concomitant]
     Indication: DRUG USE FOR UNKNOWN INDICATION
     Route: 065
  19. TOPROL-XL [Concomitant]
     Indication: DRUG USE FOR UNKNOWN INDICATION
     Route: 065
  20. NIFEDIPINE [Concomitant]
     Indication: DRUG USE FOR UNKNOWN INDICATION
     Route: 065
  21. PROTONIX [Concomitant]
     Indication: DRUG USE FOR UNKNOWN INDICATION
     Route: 065
  22. TERAZOSIN HCL [Concomitant]
     Indication: DRUG USE FOR UNKNOWN INDICATION
     Route: 065
  23. TYLENOL (CAPLET) [Concomitant]
     Indication: DRUG USE FOR UNKNOWN INDICATION
     Route: 065
  24. BENADRYL ^WARNER-LAMBERT^               /USA/ [Concomitant]
     Indication: DRUG USE FOR UNKNOWN INDICATION
     Route: 065
  25. DARVOCET-N 100 [Concomitant]
     Indication: DRUG USE FOR UNKNOWN INDICATION
     Route: 065
  26. TEMAZEPAM [Concomitant]
     Indication: DRUG USE FOR UNKNOWN INDICATION
     Route: 065
  27. NITROGLYCERIN [Concomitant]
     Indication: DRUG USE FOR UNKNOWN INDICATION
     Route: 065
  28. ANCEF [Concomitant]
     Indication: DRUG USE FOR UNKNOWN INDICATION
     Route: 065
  29. BACTROBAN NASAL [Concomitant]
     Indication: DRUG USE FOR UNKNOWN INDICATION
     Route: 065
  30. METOCLOPRAMIDE [Concomitant]
     Indication: DRUG USE FOR UNKNOWN INDICATION
     Route: 065
  31. FAMOTIDINE [Concomitant]
     Indication: DRUG USE FOR UNKNOWN INDICATION
     Route: 065
  32. POTASSIUM CHLORIDE [Concomitant]
     Indication: DRUG USE FOR UNKNOWN INDICATION
     Route: 065
  33. MEPERIDINE HCL [Concomitant]
     Indication: DRUG USE FOR UNKNOWN INDICATION
     Route: 065
  34. HYDRALAZINE HCL [Concomitant]
     Indication: DRUG USE FOR UNKNOWN INDICATION
     Route: 065
  35. INSULIN [Concomitant]
     Route: 065
  36. DIPRIVAN [Concomitant]
     Indication: DRUG USE FOR UNKNOWN INDICATION
     Route: 065
  37. PROTANE [Concomitant]
     Indication: DRUG USE FOR UNKNOWN INDICATION
     Route: 065
  38. LABETALOL HCL [Concomitant]
     Indication: DRUG USE FOR UNKNOWN INDICATION
     Route: 065
  39. LASIX [Concomitant]
     Indication: DRUG USE FOR UNKNOWN INDICATION
     Route: 065
  40. METOCLOPRAMIDE [Concomitant]
     Route: 065
  41. MIDAZOLAM HCL [Concomitant]
     Indication: DRUG USE FOR UNKNOWN INDICATION
     Route: 065
  42. ASPIRIN [Concomitant]
     Indication: DRUG USE FOR UNKNOWN INDICATION
     Route: 065
  43. METOPROLOL TART TABLET [Concomitant]
     Indication: DRUG USE FOR UNKNOWN INDICATION
     Route: 065
  44. BACTROBAN NASAL [Concomitant]
     Route: 065
  45. LEVEMIR [Concomitant]
     Indication: DRUG USE FOR UNKNOWN INDICATION
     Route: 065
  46. PROCAINAMIDE [Concomitant]
     Indication: DRUG USE FOR UNKNOWN INDICATION
     Route: 065
  47. LEVAQUIN [Concomitant]
     Indication: DRUG USE FOR UNKNOWN INDICATION
     Route: 065
  48. B+O SUPPOSITORY [Concomitant]
     Indication: DRUG USE FOR UNKNOWN INDICATION
     Route: 065
  49. PHENERGAN [Concomitant]
     Indication: DRUG USE FOR UNKNOWN INDICATION
     Route: 065
  50. DOPAMINE HCL [Concomitant]
     Indication: DRUG USE FOR UNKNOWN INDICATION
     Route: 065
  51. AMIODARONE [Concomitant]
     Indication: DRUG USE FOR UNKNOWN INDICATION
     Route: 065
  52. HYDROCORTISONE [Concomitant]
     Indication: DRUG USE FOR UNKNOWN INDICATION
     Route: 065
  53. ZOSYN [Concomitant]
     Indication: DRUG USE FOR UNKNOWN INDICATION
     Route: 065
  54. LEVOPHED [Concomitant]
     Indication: DRUG USE FOR UNKNOWN INDICATION
     Route: 065
  55. OPIUM AND BELLADONNA [Concomitant]
     Indication: DRUG USE FOR UNKNOWN INDICATION
     Route: 065
  56. PIPERACILLIN SODIUM AND TAZOBACTAM SODIUM [Concomitant]
     Indication: DRUG USE FOR UNKNOWN INDICATION
     Route: 065
  57. NAHC03 [Concomitant]
     Indication: DRUG USE FOR UNKNOWN INDICATION
     Route: 065
  58. TEMAZEPAM [Concomitant]
     Route: 065
  59. ATIVAN [Concomitant]
     Indication: DRUG USE FOR UNKNOWN INDICATION
     Route: 065
  60. ARGATROBAN [Concomitant]
     Indication: DRUG USE FOR UNKNOWN INDICATION
     Route: 065
  61. NOREPINEPHRINE BITARTRATE [Concomitant]
     Indication: DRUG USE FOR UNKNOWN INDICATION
     Route: 065
  62. PARENTERAL NUTRITION SOLUTION [Concomitant]
     Indication: DRUG USE FOR UNKNOWN INDICATION
     Route: 065
  63. XOPENEX [Concomitant]
     Indication: DRUG USE FOR UNKNOWN INDICATION
     Route: 065
  64. ATROVENT [Concomitant]
     Indication: DRUG USE FOR UNKNOWN INDICATION
     Route: 065
  65. MUCOMYST                                /USA/ [Concomitant]
     Indication: DRUG USE FOR UNKNOWN INDICATION
     Route: 042
  66. CORTICOSTEROIDS [Concomitant]
     Indication: DRUG USE FOR UNKNOWN INDICATION
     Route: 065
  67. EPINEPHRINE [Concomitant]
     Indication: DRUG USE FOR UNKNOWN INDICATION
     Route: 065

REACTIONS (6)
  - ABDOMINAL PAIN UPPER [None]
  - BACTERAEMIA [None]
  - DYSPNOEA [None]
  - NAUSEA [None]
  - SEPSIS [None]
  - UNRESPONSIVE TO STIMULI [None]
